FAERS Safety Report 7804614-8 (Version None)
Quarter: 2011Q4

REPORT INFORMATION
  Report Type: 
  Country: None (occurrence: None)
  Receive Date: 20111010
  Receipt Date: 20111004
  Transmission Date: 20120403
  Serious: Yes (Other)
  Sender: FDA-Public Use
  Company Number: US-AMGEN-USASP2011035136

PATIENT
  Age: 71 Year
  Sex: Female

DRUGS (2)
  1. ENBREL [Suspect]
     Indication: RHEUMATOID ARTHRITIS
     Dosage: 50 MG, QWK
     Dates: start: 20110426
  2. ENBREL [Suspect]
     Dosage: 50 MG, QWK
     Dates: start: 20110426

REACTIONS (13)
  - CHROMATURIA [None]
  - FATIGUE [None]
  - ROTATOR CUFF SYNDROME [None]
  - HOT FLUSH [None]
  - MEMORY IMPAIRMENT [None]
  - CHEST PAIN [None]
  - HYPERSOMNIA [None]
  - HERPES ZOSTER [None]
  - DEPRESSION [None]
  - DYSURIA [None]
  - CONTUSION [None]
  - GOUT [None]
  - SOMNOLENCE [None]
